FAERS Safety Report 4432826-2 (Version None)
Quarter: 2004Q3

REPORT INFORMATION
  Report Type: 
  Country: None (occurrence: None)
  Receive Date: 20040726
  Receipt Date: 20040519
  Transmission Date: 20050211
  Serious: No
  Sender: FDA-Public Use
  Company Number: USA040567883

PATIENT
  Age: 82 Year
  Sex: Female
  Weight: 68 kg

DRUGS (4)
  1. FORTEO [Suspect]
     Indication: OSTEOPOROSIS
     Dosage: 20 UG DAY
     Dates: start: 20040407
  2. CELEBREX [Concomitant]
  3. PREVACID [Concomitant]
  4. CALCIUM [Concomitant]

REACTIONS (4)
  - ASTHENIA [None]
  - HEART RATE INCREASED [None]
  - OEDEMA PERIPHERAL [None]
  - PAIN IN EXTREMITY [None]
